FAERS Safety Report 8103379-2 (Version None)
Quarter: 2012Q1

REPORT INFORMATION
  Report Type: 
  Country: None (occurrence: None)
  Receive Date: 20120201
  Receipt Date: 20120130
  Transmission Date: 20120608
  Serious: Yes (Other)
  Sender: FDA-Public Use
  Company Number: US-PFIZER INC-2012025324

PATIENT
  Sex: Female
  Weight: 53.061 kg

DRUGS (4)
  1. LIPITOR [Suspect]
     Indication: BLOOD CHOLESTEROL INCREASED
     Dosage: 80 MG, 1X/DAY
     Route: 048
     Dates: end: 20120101
  2. AMARYL [Concomitant]
     Indication: DIABETES MELLITUS
     Dosage: UNK
  3. LORTAB [Concomitant]
     Dosage: UNK
  4. AVALIDE [Concomitant]
     Dosage: UNK

REACTIONS (2)
  - ARTHRITIS INFECTIVE [None]
  - ARTERIAL OCCLUSIVE DISEASE [None]
